FAERS Safety Report 21032024 (Version 1)
Quarter: 2022Q3

REPORT INFORMATION
  Report Type: Spontaneous
  Country: US (occurrence: US)
  Receive Date: 20220701
  Receipt Date: 20220701
  Transmission Date: 20221027
  Serious: Yes (Hospitalization)
  Sender: FDA-Public Use
  Company Number: US-SA-SAC20220630000038

PATIENT

DRUGS (2)
  1. DUPIXENT [Suspect]
     Active Substance: DUPILUMAB
     Indication: Asthma
     Route: 058
  2. DUPIXENT [Suspect]
     Active Substance: DUPILUMAB
     Indication: Product used for unknown indication

REACTIONS (11)
  - Nervous system disorder [Unknown]
  - Cardiomegaly [Unknown]
  - Condition aggravated [Unknown]
  - Osteoporosis [Unknown]
  - Skin discolouration [Unknown]
  - Neuralgia [Unknown]
  - Injection site urticaria [Unknown]
  - Weight increased [Unknown]
  - Skin atrophy [Unknown]
  - Injection site bruising [Unknown]
  - Product use issue [Unknown]

NARRATIVE: CASE EVENT DATE: 20190718
